FAERS Safety Report 20583453 (Version 2)
Quarter: 2022Q2

REPORT INFORMATION
  Report Type: Spontaneous
  Country: JP (occurrence: JP)
  Receive Date: 20220311
  Receipt Date: 20220401
  Transmission Date: 20220721
  Serious: Yes (Death, Hospitalization, Other)
  Sender: FDA-Public Use
  Company Number: JP-OTSUKA-2022_011121

PATIENT
  Sex: Female

DRUGS (4)
  1. SAMSCA [Suspect]
     Active Substance: TOLVAPTAN
     Indication: Oedema due to hepatic disease
     Dosage: UNK
     Route: 048
  2. TRIENTINE DIHYDROCHLORIDE [Concomitant]
     Indication: Hepato-lenticular degeneration
     Dosage: UNK
     Route: 065
  3. ZINC ACETATE [Concomitant]
     Active Substance: ZINC ACETATE
     Indication: Hepato-lenticular degeneration
     Dosage: UNK
     Route: 065
  4. ROMIPLOSTIM [Concomitant]
     Active Substance: ROMIPLOSTIM
     Indication: Product used for unknown indication
     Dosage: UNK
     Route: 065

REACTIONS (4)
  - Hepatic failure [Fatal]
  - Multiple organ dysfunction syndrome [Fatal]
  - Renal impairment [Fatal]
  - Oedema peripheral [Unknown]
